FAERS Safety Report 8203297-5 (Version None)
Quarter: 2012Q1

REPORT INFORMATION
  Report Type: 
  Country: None (occurrence: None)
  Receive Date: 20120312
  Receipt Date: 20120312
  Transmission Date: 20120608
  Serious: Yes (Hospitalization, Other)
  Sender: FDA-Public Use
  Company Number: US-ABBOTT-12P-163-0913313-00

PATIENT
  Sex: Female
  Weight: 54.48 kg

DRUGS (3)
  1. HUMIRA [Suspect]
     Indication: CROHN'S DISEASE
     Route: 058
     Dates: start: 20070101, end: 20090501
  2. XANAX [Concomitant]
     Indication: ANXIETY
     Dosage: 3 TIMES PER DAY AS NEEDED
  3. HUMIRA [Suspect]
     Route: 058
     Dates: start: 20091101, end: 20110601

REACTIONS (7)
  - PNEUMONIA [None]
  - MALAISE [None]
  - FEELING COLD [None]
  - NASOPHARYNGITIS [None]
  - SEPSIS [None]
  - INFLUENZA [None]
  - PYREXIA [None]
